FAERS Safety Report 10039588 (Version 13)
Quarter: 2014Q3

REPORT INFORMATION
  Report Type: Spontaneous
  Country: HU (occurrence: HU)
  Receive Date: 20140326
  Receipt Date: 20140801
  Transmission Date: 20150326
  Serious: Yes (Death, Hospitalization, Other)
  Sender: FDA-Public Use
  Company Number: HU-PFIZER INC-2013166396

PATIENT
  Age: 60 Year
  Sex: Male

DRUGS (8)
  1. CARDURA [Concomitant]
     Active Substance: DOXAZOSIN MESYLATE
     Indication: HYPERTENSION
     Dosage: UNK
     Dates: end: 201402
  2. NORVASC [Concomitant]
     Active Substance: AMLODIPINE BESYLATE
     Indication: HYPERTENSION
     Dosage: UNK
     Dates: end: 201402
  3. SUTENT [Suspect]
     Active Substance: SUNITINIB MALATE
     Dosage: 50 MG,  2ND CYCLE, ONCE DAILY IN SCHEME 4/2 (4 WEEKS ON, 2 WEEKS OFF)
     Route: 048
     Dates: start: 20130523, end: 20130619
  4. SUTENT [Suspect]
     Active Substance: SUNITINIB MALATE
     Dosage: 50 MG,  3RD CYCLE, ONCE DAILY IN SCHEME 4/2 (4 WEEKS ON, 2 WEEKS OFF)
     Route: 048
     Dates: start: 20130705, end: 20130801
  5. SUTENT [Suspect]
     Active Substance: SUNITINIB MALATE
     Dosage: 50 MG, 4TH CYCLE, ONCE DAILY IN SCHEME 4/2 (4 WEEKS ON, 2 WEEKS OFF)
     Route: 048
     Dates: start: 20130815, end: 20130911
  6. SUTENT [Suspect]
     Active Substance: SUNITINIB MALATE
     Dosage: 50 MG, 5TH CYCLE, ONCE DAILY IN SCHEME 4/2 (4 WEEKS ON, 2 WEEKS OFF)
     Route: 048
     Dates: start: 20130926, end: 20131024
  7. SUTENT [Suspect]
     Active Substance: SUNITINIB MALATE
     Indication: RENAL CANCER METASTATIC
     Dosage: 50 MG, 1ST CYCLE, ONCE DAILY IN SCHEME 4/2 (4 WEEKS ON, 2 WEEKS OFF)
     Route: 048
     Dates: start: 20130412, end: 20130508
  8. SUTENT [Suspect]
     Active Substance: SUNITINIB MALATE
     Dosage: 50 MG, 6TH CYCLE, ONCE DAILY FOR 2 DAYS AND THEN 1 DAY BREAK
     Route: 048
     Dates: start: 201311

REACTIONS (22)
  - Stomatitis [Recovered/Resolved]
  - Dry skin [Recovered/Resolved]
  - Ecchymosis [Not Recovered/Not Resolved]
  - Dysgeusia [Recovered/Resolved]
  - Feeling abnormal [Recovered/Resolved]
  - Vomiting [Recovered/Resolved]
  - Skin exfoliation [Recovered/Resolved]
  - Asthenia [Not Recovered/Not Resolved]
  - Abdominal pain [Not Recovered/Not Resolved]
  - Peripheral swelling [Not Recovered/Not Resolved]
  - Peripheral swelling [Not Recovered/Not Resolved]
  - Diarrhoea [Recovered/Resolved]
  - Palmar-plantar erythrodysaesthesia syndrome [Recovered/Resolved]
  - Second primary malignancy [Not Recovered/Not Resolved]
  - T-cell lymphoma [Not Recovered/Not Resolved]
  - Disease progression [Fatal]
  - Epistaxis [Recovered/Resolved]
  - Eye haemorrhage [Recovering/Resolving]
  - Renal cancer metastatic [Fatal]
  - Vomiting [Recovering/Resolving]
  - Blood pressure systolic increased [Recovered/Resolved]
  - Epistaxis [Recovered/Resolved]

NARRATIVE: CASE EVENT DATE: 2013
